FAERS Safety Report 7387098-6 (Version None)
Quarter: 2011Q1

REPORT INFORMATION
  Report Type: 
  Country: None (occurrence: None)
  Receive Date: 20110331
  Receipt Date: 20110318
  Transmission Date: 20110831
  Serious: Yes (Death, Hospitalization)
  Sender: FDA-Public Use
  Company Number: A0729728A

PATIENT
  Age: 75 Year
  Sex: Female
  Weight: 83 kg

DRUGS (22)
  1. PLAVIX [Concomitant]
  2. LOPRESSOR [Concomitant]
  3. EXELON [Concomitant]
  4. ALBUTEROL [Concomitant]
  5. POTASSIUM [Concomitant]
  6. PHENERGAN HCL [Concomitant]
  7. METOPROLOL [Concomitant]
     Dates: start: 20051227
  8. MEDROL [Concomitant]
  9. DARVOCET [Concomitant]
  10. AMBIEN [Concomitant]
  11. TOPROL-XL [Concomitant]
  12. OSCAL [Concomitant]
  13. NITRO-DUR [Concomitant]
  14. ZITHROMAX [Concomitant]
  15. AVANDAMET [Suspect]
     Route: 048
     Dates: start: 20030827, end: 20060102
  16. AVANDIA [Suspect]
     Dosage: 8MG PER DAY
     Route: 048
     Dates: start: 20060102, end: 20060515
  17. NITROGLYCERIN [Concomitant]
     Dates: start: 20051227
  18. LASIX [Concomitant]
  19. MEGACE [Concomitant]
  20. METHYLPREDNISOLONE ACETATE [Concomitant]
     Dates: start: 20060202
  21. GLUCOPHAGE [Concomitant]
  22. PRINIVIL [Concomitant]

REACTIONS (9)
  - MYOCARDIAL INFARCTION [None]
  - CORONARY ARTERY DISEASE [None]
  - CARDIOGENIC SHOCK [None]
  - TRANSIENT ISCHAEMIC ATTACK [None]
  - CARDIOMYOPATHY [None]
  - CARDIAC FAILURE CONGESTIVE [None]
  - PAIN [None]
  - HYPOTENSION [None]
  - CEREBROVASCULAR ACCIDENT [None]
